FAERS Safety Report 17339575 (Version 1)
Quarter: 2020Q1

REPORT INFORMATION
  Report Type: Spontaneous
  Country: US (occurrence: US)
  Receive Date: 20200129
  Receipt Date: 20200129
  Transmission Date: 20200409
  Serious: No
  Sender: FDA-Public Use
  Company Number: US-ALLERGAN-1904275US

PATIENT
  Age: 39 Year
  Sex: Female

DRUGS (3)
  1. BOTOX COSMETIC [Suspect]
     Active Substance: ONABOTULINUMTOXINA
     Indication: SKIN WRINKLING
     Dosage: ACTUAL: 2 UNITS FOR FOREHEAD, 2 UNITS FOR DAOS (DEPRESSOR ANGULI ORIS AREA)
     Route: 030
     Dates: start: 20190129, end: 20190129
  2. BOTOX COSMETIC [Suspect]
     Active Substance: ONABOTULINUMTOXINA
     Indication: SKIN WRINKLING
     Dosage: ACTUAL: 18 UNITS FOR FOREHEAD, 10 UNITS FOR GLABELLA, 4 UNITS FOR DAOS (DEPRESSOR ANGULI ORIS AREA)
     Route: 030
     Dates: start: 20190123, end: 20190123
  3. BOTOX COSMETIC [Suspect]
     Active Substance: ONABOTULINUMTOXINA
     Indication: SKIN WRINKLING

REACTIONS (4)
  - Off label use [Unknown]
  - Drug ineffective [Unknown]
  - Vision blurred [Not Recovered/Not Resolved]
  - Facial paralysis [Not Recovered/Not Resolved]

NARRATIVE: CASE EVENT DATE: 20190123
